FAERS Safety Report 13988525 (Version 1)
Quarter: 2017Q3

REPORT INFORMATION
  Report Type: Spontaneous
  Country: GB (occurrence: GB)
  Receive Date: 20170919
  Receipt Date: 20170919
  Transmission Date: 20171128
  Serious: Yes (Hospitalization)
  Sender: FDA-Public Use
  Company Number: GB-PFIZER INC-2017396800

PATIENT
  Age: 59 Year
  Sex: Male
  Weight: 105 kg

DRUGS (19)
  1. MAGNESIUM SULPHATE /01097001/ [Suspect]
     Active Substance: MAGNESIUM SULFATE
  2. COLECALCIFEROL [Concomitant]
     Active Substance: CHOLECALCIFEROL
     Dosage: MORNING
     Route: 048
  3. RANITIDINE. [Concomitant]
     Active Substance: RANITIDINE
     Dosage: 150 MG, 2X/DAY
     Route: 048
  4. ADDITRACE [Suspect]
     Active Substance: MINERALS
     Dosage: 10 ML, UNK
  5. LIPIDEM [Suspect]
     Active Substance: MEDIUM-CHAIN TRIGLYCERIDES\OMEGA-3 FATTY ACIDS\SOYBEAN OIL
  6. GLUCOSE [Suspect]
     Active Substance: DEXTROSE
  7. POTASSIUM CHLORIDE. [Suspect]
     Active Substance: POTASSIUM CHLORIDE
     Dosage: 60 MG, UNK
  8. SODIUM CHLORIDE. [Suspect]
     Active Substance: SODIUM CHLORIDE
     Dosage: 55.94 ML, UNK
  9. ASPIRIN. [Concomitant]
     Active Substance: ASPIRIN
     Dosage: 75 MG, 1X/DAY
     Route: 048
  10. AMINOPLASMAL /02133801/ [Suspect]
     Active Substance: AMINO ACIDS
     Dosage: 666.67 ML, UNK
  11. ASCORBIC ACID. [Suspect]
     Active Substance: ASCORBIC ACID
     Dosage: 1 ML, UNK
  12. CODEINE [Concomitant]
     Active Substance: CODEINE
     Dosage: 30 MG, 2X/DAY
     Route: 048
  13. SOLIVITO N /01801401/ [Suspect]
     Active Substance: VITAMINS
     Dosage: 10 ML, UNK
  14. SODIUM GLYCEROPHOSPHATE [Suspect]
     Active Substance: SODIUM GLYCEROPHOSPHATE
     Dosage: 16.95 ML, UNK
  15. LOPERAMIDE [Concomitant]
     Active Substance: LOPERAMIDE
     Dosage: 10 MG, 4X/DAY
     Route: 048
  16. VITLIPID N [Suspect]
     Active Substance: ERGOCALCIFEROL\PHYTONADIONE\RETINOL\TOCOPHEROL
     Dosage: 10 ML, UNK
  17. CALCIUM GLUCONATE. [Suspect]
     Active Substance: CALCIUM GLUCONATE
     Dosage: 88.81 ML, UNK
  18. ATORVASTATIN [Concomitant]
     Active Substance: ATORVASTATIN
     Dosage: NIGHT
     Route: 048
  19. BISOPROLOL [Concomitant]
     Active Substance: BISOPROLOL
     Dosage: 1.25 MG, 1X/DAY
     Route: 048

REACTIONS (4)
  - Device related infection [None]
  - Chills [Recovered/Resolved]
  - Candida infection [Recovering/Resolving]
  - Pyrexia [Recovered/Resolved]

NARRATIVE: CASE EVENT DATE: 201708
